FAERS Safety Report 13108557 (Version 1)
Quarter: 2017Q1

REPORT INFORMATION
  Report Type: Spontaneous
  Country: US (occurrence: US)
  Receive Date: 20170111
  Receipt Date: 20170111
  Transmission Date: 20170428
  Serious: No
  Sender: FDA-Public Use
  Company Number: None

PATIENT
  Age: 33 Year
  Sex: Female
  Weight: 57.15 kg

DRUGS (3)
  1. BUPROPION XL [Suspect]
     Active Substance: BUPROPION
     Indication: SOMNOLENCE
     Dosage: ?          QUANTITY:1 CAPSULE(S);?
     Route: 048
     Dates: start: 20161228, end: 20170111
  2. LORYNA [Concomitant]
     Active Substance: DROSPIRENONE\ETHINYL ESTRADIOL
  3. DOXYCYCLINE. [Concomitant]
     Active Substance: DOXYCYCLINE

REACTIONS (8)
  - Mood swings [None]
  - Product substitution issue [None]
  - Headache [None]
  - Feeling jittery [None]
  - Depressed level of consciousness [None]
  - Mood altered [None]
  - Depression [None]
  - Anxiety [None]

NARRATIVE: CASE EVENT DATE: 20161228
